FAERS Safety Report 9710008 (Version 1)
Quarter: 2013Q4

REPORT INFORMATION
  Report Type: Other
  Country: GB (occurrence: GB)
  Receive Date: 20131126
  Receipt Date: 20131126
  Transmission Date: 20140711
  Serious: Yes (Other)
  Sender: FDA-Public Use
  Company Number: GB-TARO PHARMACEUTICALS U.S.A., INC-2013SUN05025

PATIENT
  Age: 78 Year
  Sex: Female
  Weight: 68 kg

DRUGS (3)
  1. WARFARIN [Suspect]
     Indication: HEART VALVE REPLACEMENT
     Dosage: UNK
     Route: 048
     Dates: start: 20130912, end: 20131010
  2. DIGOXIN [Concomitant]
     Indication: ATRIAL FIBRILLATION
     Dosage: 125 MCG, UNK
     Route: 048
     Dates: start: 1999
  3. RAMIPRIL [Concomitant]
     Indication: ATRIAL FIBRILLATION
     Dosage: 1.25 MG, UNK
     Route: 048
     Dates: start: 201307

REACTIONS (2)
  - Product quality issue [Unknown]
  - International normalised ratio decreased [Recovered/Resolved]
